FAERS Safety Report 25522458 (Version 1)
Quarter: 2025Q3

REPORT INFORMATION
  Report Type: Spontaneous
  Country: CA (occurrence: CA)
  Receive Date: 20250707
  Receipt Date: 20250707
  Transmission Date: 20251020
  Serious: Yes (Other)
  Sender: ACCORD
  Company Number: None

PATIENT
  Sex: Male

DRUGS (2)
  1. ROSUVASTATIN CALCIUM [Suspect]
     Active Substance: ROSUVASTATIN CALCIUM
     Indication: Arteriosclerosis
     Route: 048
  2. INCLISIRAN [Suspect]
     Active Substance: INCLISIRAN
     Indication: Arteriosclerosis
     Route: 065

REACTIONS (7)
  - Product use in unapproved indication [Unknown]
  - Hypersensitivity [Unknown]
  - Pain [Unknown]
  - Arthritis [Unknown]
  - Diabetes mellitus [Unknown]
  - Mental disorder [Unknown]
  - Malaise [Unknown]
